FAERS Safety Report 8921944 (Version 1)
Quarter: 2012Q4

REPORT INFORMATION
  Report Type: Spontaneous
  Country: US (occurrence: None)
  Receive Date: 20121119
  Receipt Date: 20121119
  Transmission Date: 20130627
  Serious: Yes (Other)
  Sender: FDA-Public Use
  Company Number: None

PATIENT
  Age: 58 Year
  Sex: Female

DRUGS (3)
  1. HUMIRA (ABBOTT) [Suspect]
     Indication: RHEUMATOID ARTHRITIS
     Dosage: 40mg one dose only sq
     Route: 058
     Dates: start: 20121116, end: 20121116
  2. HUMIRA (ABBOTT) [Suspect]
     Indication: RHEUMATOID ARTHRITIS
     Dates: start: 201106, end: 201108
  3. CIMZIA [Concomitant]

REACTIONS (3)
  - Blood pressure increased [None]
  - Cerebrovascular accident [None]
  - Hypoaesthesia [None]
